FAERS Safety Report 17231024 (Version 1)
Quarter: 2020Q1

REPORT INFORMATION
  Report Type: Spontaneous
  Country: AU (occurrence: AU)
  Receive Date: 20200103
  Receipt Date: 20200103
  Transmission Date: 20200409
  Serious: Yes (Death, Hospitalization, Other)
  Sender: FDA-Public Use
  Company Number: NVSC2020AU000464

PATIENT
  Age: 44 Year
  Sex: Female

DRUGS (17)
  1. CYTARABINE. [Suspect]
     Active Substance: CYTARABINE
     Indication: HEPATOSPLENIC T-CELL LYMPHOMA
     Dosage: 3 G/M2
     Route: 065
  2. GEMCITABINE. [Suspect]
     Active Substance: GEMCITABINE
     Indication: HEPATOSPLENIC T-CELL LYMPHOMA
     Dosage: UNK
     Route: 065
  3. METHOTREXATE. [Suspect]
     Active Substance: METHOTREXATE
     Indication: HEPATOSPLENIC T-CELL LYMPHOMA
     Dosage: UNK (HIGH DOSE)
     Route: 065
  4. DOXORUBICIN [Suspect]
     Active Substance: DOXORUBICIN
     Indication: HEPATOSPLENIC T-CELL LYMPHOMA
     Dosage: UNK
     Route: 065
  5. VINCRISTINE [Suspect]
     Active Substance: VINCRISTINE
     Indication: HEPATOSPLENIC T-CELL LYMPHOMA
     Dosage: UNK
     Route: 065
  6. CYTARABINE. [Suspect]
     Active Substance: CYTARABINE
     Dosage: UNK, QW2
     Route: 037
  7. CYTARABINE. [Suspect]
     Active Substance: CYTARABINE
     Dosage: 1.5 G/M2
     Route: 065
  8. METHOTREXATE. [Suspect]
     Active Substance: METHOTREXATE
     Dosage: UNK
     Route: 037
  9. ETOPOSIDE. [Suspect]
     Active Substance: ETOPOSIDE
     Indication: HEPATOSPLENIC T-CELL LYMPHOMA
     Dosage: UNK
     Route: 065
  10. METHOTREXATE. [Suspect]
     Active Substance: METHOTREXATE
     Dosage: 12 MG (2 DOSES)
     Route: 037
  11. CYCLOPHOSPHAMIDE. [Suspect]
     Active Substance: CYCLOPHOSPHAMIDE
     Indication: HEPATOSPLENIC T-CELL LYMPHOMA
     Dosage: UNK
     Route: 065
  12. VINORELBINE [Suspect]
     Active Substance: VINORELBINE TARTRATE
     Indication: HEPATOSPLENIC T-CELL LYMPHOMA
     Dosage: UNK
     Route: 065
  13. IFOSFAMIDE. [Suspect]
     Active Substance: IFOSFAMIDE
     Indication: HEPATOSPLENIC T-CELL LYMPHOMA
     Dosage: UNK
     Route: 065
  14. DEXAMETHASONE. [Suspect]
     Active Substance: DEXAMETHASONE
     Indication: HEPATOSPLENIC T-CELL LYMPHOMA
     Dosage: UNK
     Route: 065
  15. CYTARABINE. [Suspect]
     Active Substance: CYTARABINE
     Dosage: 100 MG (9 DOSES OVER AN 18-WEEK)
     Route: 065
  16. CARBOPLATIN. [Suspect]
     Active Substance: CARBOPLATIN
     Indication: HEPATOSPLENIC T-CELL LYMPHOMA
     Dosage: UNK
     Route: 065
  17. PRALATREXATE [Suspect]
     Active Substance: PRALATREXATE
     Indication: HEPATOSPLENIC T-CELL LYMPHOMA
     Dosage: UNK
     Route: 065

REACTIONS (10)
  - Metastases to central nervous system [Fatal]
  - Malignant neoplasm progression [Unknown]
  - Neutropenic sepsis [Unknown]
  - Hepatosplenic T-cell lymphoma [Unknown]
  - Product use in unapproved indication [Unknown]
  - Generalised tonic-clonic seizure [Fatal]
  - Drug intolerance [Unknown]
  - Paralysis [Fatal]
  - Quadriplegia [Fatal]
  - Postictal state [Fatal]
